FAERS Safety Report 8125125-9 (Version None)
Quarter: 2012Q1

REPORT INFORMATION
  Report Type: 
  Country: None (occurrence: None)
  Receive Date: 20120130
  Receipt Date: 20120116
  Transmission Date: 20120608
  Serious: Yes (Other)
  Sender: FDA-Public Use
  Company Number: 2011029375

PATIENT
  Age: 39 Year
  Sex: Female
  Weight: 49.8957 kg

DRUGS (8)
  1. PRILOSEC [Concomitant]
  2. GENTAMYCIN NASAL RINSE (GENTAMICIN) [Concomitant]
  3. ESTRACE [Concomitant]
  4. SINGULAIR (MONTELUKAST) [Concomitant]
  5. HIZENTRA [Suspect]
     Indication: IMMUNODEFICIENCY COMMON VARIABLE
     Dosage: SEE IMAGE
     Route: 058
     Dates: start: 20110719
  6. IBUPROFEN [Concomitant]
  7. HIZENTRA [Suspect]
  8. XYZAL [Concomitant]

REACTIONS (5)
  - STAPHYLOCOCCAL INFECTION [None]
  - MYALGIA [None]
  - INFUSION SITE PAIN [None]
  - INFLUENZA LIKE ILLNESS [None]
  - SINUSITIS [None]
